FAERS Safety Report 16767203 (Version 2)
Quarter: 2019Q3

REPORT INFORMATION
  Report Type: Not Available
  Country: US (occurrence: US)
  Receive Date: 20190903
  Receipt Date: 20190926
  Transmission Date: 20191005
  Serious: No
  Sender: FDA-Public Use
  Company Number: US-NEUROCRINE BIOSCIENCES INC.-2019NBI02399

PATIENT
  Age: 65 Year
  Sex: Female

DRUGS (19)
  1. INGREZZA [Suspect]
     Active Substance: VALBENAZINE
     Indication: TARDIVE DYSKINESIA
     Route: 048
     Dates: start: 20190117, end: 20190124
  2. TRAMADOL. [Concomitant]
     Active Substance: TRAMADOL
  3. ASPIRIN. [Concomitant]
     Active Substance: ASPIRIN
     Route: 048
  4. INGREZZA [Suspect]
     Active Substance: VALBENAZINE
     Route: 048
     Dates: start: 20190125
  5. FERROUS SULFATE. [Concomitant]
     Active Substance: FERROUS SULFATE
     Dosage: (IRON 65 MG)
     Route: 048
  6. LOPERAMIDE [Concomitant]
     Active Substance: LOPERAMIDE
     Dosage: 3 TIMES DAILY AS REQUIRED
     Route: 048
  7. GABAPENTIN. [Concomitant]
     Active Substance: GABAPENTIN
     Dosage: FOR 12 DAYS
     Route: 048
  8. SUMATRIPTAN. [Concomitant]
     Active Substance: SUMATRIPTAN
     Dosage: EVERY DAY AS NEEDED
     Route: 048
  9. ACETAMINOPHEN. [Concomitant]
     Active Substance: ACETAMINOPHEN
     Dosage: TAKE 2 TABLETS EVERY 6 HOURS BY ORAL AS NEEDED
     Route: 048
  10. BUPROPION HCL [Concomitant]
     Active Substance: BUPROPION HYDROCHLORIDE
     Route: 048
  11. BUPROPION HCL [Concomitant]
     Active Substance: BUPROPION HYDROCHLORIDE
     Dosage: FOR 30 DAYS
     Route: 048
  12. BUSPIRONE [Concomitant]
     Active Substance: BUSPIRONE HYDROCHLORIDE
     Dosage: FOR 90 DAYS
     Route: 048
  13. NAPROXEN. [Concomitant]
     Active Substance: NAPROXEN
     Dosage: 1 TABLET TWICE A DAY AS NEEDED
     Route: 048
  14. NITROGLYCERIN. [Concomitant]
     Active Substance: NITROGLYCERIN
     Dosage: TAKE 1 TABLET AT ONSET OF SYMPTOMS REPEAT IN 5 MINUTES IF SYMPTOMS DO NOT IMPROVE. MAXIMUM OF 3
     Route: 048
  15. OMEPRAZOLE. [Concomitant]
     Active Substance: OMEPRAZOLE
     Route: 048
  16. VITAMIN D2 [Concomitant]
     Active Substance: ERGOCALCIFEROL
     Route: 048
  17. TUMS [Concomitant]
     Active Substance: CALCIUM CARBONATE
  18. VITAMIN D3 [Concomitant]
     Active Substance: CHOLECALCIFEROL
     Route: 048
  19. LAMOTRIGINE. [Concomitant]
     Active Substance: LAMOTRIGINE
     Route: 048

REACTIONS (3)
  - Urinary tract infection [Unknown]
  - Stress [Recovering/Resolving]
  - Therapeutic product effect decreased [None]

NARRATIVE: CASE EVENT DATE: 2019
